FAERS Safety Report 4920791-0 (Version None)
Quarter: 2006Q1

REPORT INFORMATION
  Report Type: 
  Country: None (occurrence: None)
  Receive Date: 20060217
  Receipt Date: 20050830
  Transmission Date: 20060701
  Serious: Yes (Hospitalization)
  Sender: FDA-Public Use
  Company Number: 0104-2361

PATIENT
  Age: 72 Year
  Sex: Female
  Weight: 73.0291 kg

DRUGS (11)
  1. ADVICOR [Suspect]
     Indication: BLOOD CHOLESTEROL INCREASED
     Dosage: 1 TABLET (S) QHS PO
     Route: 048
     Dates: start: 20040401, end: 20050627
  2. ALTACE [Concomitant]
  3. METOPROLOL [Concomitant]
  4. LANSOPRAZOLE [Concomitant]
  5. ECOTRIN [Concomitant]
  6. CALCIUM GLUCONATE [Concomitant]
  7. ASCORBIC ACID [Concomitant]
  8. VITAMIN B COMPLEX CAP [Concomitant]
  9. CENTRUM [Concomitant]
  10. OCUGUARD [Concomitant]
  11. MOTRIN [Concomitant]

REACTIONS (4)
  - ABDOMINAL PAIN [None]
  - DIARRHOEA HAEMORRHAGIC [None]
  - HYPERHIDROSIS [None]
  - VOMITING [None]
